FAERS Safety Report 25534094 (Version 1)
Quarter: 2025Q3

REPORT INFORMATION
  Report Type: Spontaneous
  Country: CN (occurrence: CN)
  Receive Date: 20250709
  Receipt Date: 20250709
  Transmission Date: 20251021
  Serious: Yes (Hospitalization)
  Sender: RANBAXY
  Company Number: CN-SUN PHARMACEUTICAL INDUSTRIES LTD-2025R1-515205

PATIENT
  Age: 59 Year
  Sex: Female

DRUGS (3)
  1. PREDNISONE [Suspect]
     Active Substance: PREDNISONE
     Indication: Systemic lupus erythematosus
     Dosage: 20 MILLIGRAM, BID
     Route: 048
     Dates: start: 2024
  2. PREDNISONE [Suspect]
     Active Substance: PREDNISONE
     Dosage: 5 MILLIGRAM, 1/WEEK
     Route: 048
     Dates: start: 2024
  3. CYCLOSPORINE [Suspect]
     Active Substance: CYCLOSPORINE
     Indication: Thrombocytopenia
     Dosage: 50 MILLIGRAM, BID
     Route: 065

REACTIONS (1)
  - Disease recurrence [Recovering/Resolving]

NARRATIVE: CASE EVENT DATE: 20240401
